FAERS Safety Report 18346882 (Version 2)
Quarter: 2020Q4

REPORT INFORMATION
  Report Type: Spontaneous
  Country: US (occurrence: US)
  Receive Date: 20201005
  Receipt Date: 20201009
  Transmission Date: 20210114
  Serious: Yes (Other)
  Sender: FDA-Public Use
  Company Number: US-009507513-2009USA010560

PATIENT
  Age: 44 Year
  Sex: Male

DRUGS (2)
  1. BRIDION [Suspect]
     Active Substance: SUGAMMADEX
     Indication: NEUROMUSCULAR BLOCKADE REVERSAL
  2. CLINDAMYCIN. [Concomitant]
     Active Substance: CLINDAMYCIN

REACTIONS (6)
  - Negative pressure pulmonary oedema [Unknown]
  - Laryngospasm [Unknown]
  - Breath sounds absent [Unknown]
  - Bronchospasm [Unknown]
  - Anaphylactic reaction [Unknown]
  - Oxygen saturation decreased [Recovered/Resolved]
